FAERS Safety Report 8061553-8 (Version None)
Quarter: 2012Q1

REPORT INFORMATION
  Report Type: 
  Country: None (occurrence: None)
  Receive Date: 20120121
  Receipt Date: 20120117
  Transmission Date: 20120608
  Serious: Yes (Other)
  Sender: FDA-Public Use
  Company Number: GB-ACCORD-011886

PATIENT
  Age: 50 Year
  Sex: Female

DRUGS (1)
  1. LETROZOLE [Suspect]
     Indication: BREAST CANCER FEMALE

REACTIONS (6)
  - METASTASES TO KIDNEY [None]
  - METASTASES TO BONE [None]
  - NEOPLASM MALIGNANT [None]
  - METASTASES TO LIVER [None]
  - METASTASES TO LUNG [None]
  - BREAST CANCER RECURRENT [None]
